FAERS Safety Report 4893839-X (Version None)
Quarter: 2006Q1

REPORT INFORMATION
  Report Type: 
  Country: None (occurrence: None)
  Receive Date: 20060127
  Receipt Date: 20041202
  Transmission Date: 20060701
  Serious: No
  Sender: FDA-Public Use
  Company Number: US-GLAXOSMITHKLINE-A0535893A

PATIENT
  Age: 14 Year
  Sex: Male

DRUGS (2)
  1. WELLBUTRIN [Suspect]
     Indication: DEPRESSION
     Route: 048
     Dates: start: 20040201
  2. NO CONCURRENT MEDICATION [Concomitant]

REACTIONS (2)
  - SMOKER [None]
  - TREMOR [None]
